FAERS Safety Report 8275682-7 (Version None)
Quarter: 2012Q2

REPORT INFORMATION
  Report Type: 
  Country: None (occurrence: None)
  Receive Date: 20120412
  Receipt Date: 20120404
  Transmission Date: 20120825
  Serious: No
  Sender: FDA-Public Use
  Company Number: US-BIOGENIDEC-2012BI012053

PATIENT
  Sex: Female

DRUGS (3)
  1. AVONEX [Concomitant]
     Indication: MULTIPLE SCLEROSIS
     Route: 030
     Dates: start: 20040813
  2. TYSABRI [Suspect]
     Indication: MULTIPLE SCLEROSIS
     Route: 042
     Dates: start: 20110503, end: 20110603
  3. TYSABRI [Suspect]
     Route: 042
     Dates: start: 20110805

REACTIONS (6)
  - DECREASED APPETITE [None]
  - SEASONAL ALLERGY [None]
  - WEIGHT DECREASED [None]
  - MEMORY IMPAIRMENT [None]
  - SOMNOLENCE [None]
  - FATIGUE [None]
